FAERS Safety Report 21344919 (Version 2)
Quarter: 2022Q3

REPORT INFORMATION
  Report Type: Report from Study
  Country: US (occurrence: US)
  Receive Date: 20220916
  Receipt Date: 20220930
  Transmission Date: 20221027
  Serious: Yes (Death, Hospitalization)
  Sender: FDA-Public Use
  Company Number: US-AQUESTIVE THERAPEUTICS, INC-2022AQU00061

PATIENT
  Sex: Female
  Weight: 47.619 kg

DRUGS (2)
  1. EXSERVAN [Suspect]
     Active Substance: RILUZOLE
     Indication: Amyotrophic lateral sclerosis
     Dosage: UNK, 2X/DAY
     Route: 048
     Dates: start: 202206
  2. UNSPECIFIED CONCOMITANT MEDICATIONS [Concomitant]

REACTIONS (2)
  - Thrombosis [Fatal]
  - Amyotrophic lateral sclerosis [Fatal]

NARRATIVE: CASE EVENT DATE: 20220101
